FAERS Safety Report 18330535 (Version 1)
Quarter: 2020Q3

REPORT INFORMATION
  Report Type: Spontaneous
  Country: HR (occurrence: HR)
  Receive Date: 20200930
  Receipt Date: 20200930
  Transmission Date: 20201103
  Serious: Yes (Hospitalization, Other)
  Sender: FDA-Public Use
  Company Number: NVSC2020HR246102

PATIENT
  Age: 67 Year
  Sex: Male

DRUGS (1)
  1. COSENTYX [Suspect]
     Active Substance: SECUKINUMAB
     Indication: PSORIASIS
     Dosage: 300 MG, UNKNOWN
     Route: 058
     Dates: start: 20191209, end: 20200330

REACTIONS (7)
  - Pyrexia [Unknown]
  - Abdominal abscess [Unknown]
  - Inflammatory bowel disease [Not Recovered/Not Resolved]
  - Abdominal pain [Unknown]
  - Psoriasis [Unknown]
  - Anal incontinence [Unknown]
  - Defaecation urgency [Unknown]

NARRATIVE: CASE EVENT DATE: 20200409
